FAERS Safety Report 6075407-X (Version None)
Quarter: 2009Q1

REPORT INFORMATION
  Report Type: 
  Country: None (occurrence: None)
  Receive Date: 20090212
  Receipt Date: 20090211
  Transmission Date: 20090719
  Serious: Yes (Other)
  Sender: FDA-Public Use
  Company Number: A0767943A

PATIENT
  Sex: Female

DRUGS (3)
  1. ALLI [Suspect]
     Indication: DRUG USE FOR UNKNOWN INDICATION
     Route: 048
  2. DIURETIC [Concomitant]
  3. HORMONE REPLACEMENT [Concomitant]

REACTIONS (1)
  - HYPOKALAEMIA [None]
